FAERS Safety Report 11418841 (Version 4)
Quarter: 2020Q1

REPORT INFORMATION
  Report Type: Report from Study
  Country: CO (occurrence: CO)
  Receive Date: 20150826
  Receipt Date: 20200330
  Transmission Date: 20200409
  Serious: Yes (Hospitalization)
  Sender: FDA-Public Use
  Company Number: CO-ROCHE-1626243

PATIENT
  Age: 57 Year
  Sex: Male

DRUGS (1)
  1. MYCOPHENOLATE MOFETIL. [Suspect]
     Active Substance: MYCOPHENOLATE MOFETIL
     Indication: RENAL TRANSPLANT
     Route: 048
     Dates: start: 20141125

REACTIONS (9)
  - Transplant rejection [Not Recovered/Not Resolved]
  - Immunodeficiency [Unknown]
  - Hypercreatinaemia [Recovered/Resolved]
  - BK virus infection [Recovered/Resolved]
  - Kidney infection [Unknown]
  - Diarrhoea [Unknown]
  - Renal disorder [Unknown]
  - Papilloma viral infection [Not Recovered/Not Resolved]
  - Abdominal pain [Unknown]

NARRATIVE: CASE EVENT DATE: 201508
